FAERS Safety Report 8134558-6 (Version None)
Quarter: 2012Q1

REPORT INFORMATION
  Report Type: 
  Country: None (occurrence: None)
  Receive Date: 20120214
  Receipt Date: 20120206
  Transmission Date: 20120608
  Serious: No
  Sender: FDA-Public Use
  Company Number: US-BAYER-2011-069670

PATIENT
  Age: 43 Year
  Sex: Female

DRUGS (1)
  1. MIRENA [Suspect]
     Indication: MENORRHAGIA
     Dosage: 20 MCG/24HR, CONT
     Route: 015
     Dates: start: 20070401

REACTIONS (12)
  - IRRITABILITY [None]
  - AGGRESSION [None]
  - HYPOGLYCAEMIA [None]
  - MOOD SWINGS [None]
  - SWELLING [None]
  - ASTHENIA [None]
  - ADNEXA UTERI PAIN [None]
  - ABDOMINAL PAIN [None]
  - ABDOMINAL DISTENSION [None]
  - NERVOUSNESS [None]
  - HYPERHIDROSIS [None]
  - BREAST TENDERNESS [None]
